FAERS Safety Report 6978440-6 (Version None)
Quarter: 2010Q3

REPORT INFORMATION
  Report Type: 
  Country: None (occurrence: None)
  Receive Date: 20100913
  Receipt Date: 20100903
  Transmission Date: 20110219
  Serious: Yes (Hospitalization)
  Sender: FDA-Public Use
  Company Number: FI-ASTRAZENECA-2010SE41792

PATIENT
  Age: 12484 Day
  Sex: Male

DRUGS (1)
  1. NEXIUM [Suspect]
     Indication: TOOTH DISORDER
     Route: 048
     Dates: start: 20100501, end: 20100714

REACTIONS (5)
  - ALANINE AMINOTRANSFERASE [None]
  - ASPARTATE AMINOTRANSFERASE [None]
  - BLOOD ALKALINE PHOSPHATASE [None]
  - GAMMA-GLUTAMYLTRANSFERASE [None]
  - HEPATIC ENZYME INCREASED [None]
